FAERS Safety Report 18591475 (Version 1)
Quarter: 2020Q4

REPORT INFORMATION
  Report Type: Report from Study
  Country: None (occurrence: US)
  Receive Date: 20201208
  Receipt Date: 20201208
  Transmission Date: 20210114
  Serious: Yes (Hospitalization)
  Sender: FDA-Public Use
  Company Number: US-ABBVIE-20K-163-3679897-00

PATIENT
  Sex: Female

DRUGS (2)
  1. IMBRUVICA [Suspect]
     Active Substance: IBRUTINIB
     Indication: WALDENSTROM^S MACROGLOBULINAEMIA
     Route: 048
     Dates: start: 20200617
  2. IMBRUVICA [Suspect]
     Active Substance: IBRUTINIB
     Route: 048
     Dates: start: 20200607

REACTIONS (4)
  - Heart rate decreased [Recovering/Resolving]
  - Glossodynia [Not Recovered/Not Resolved]
  - Breast mass [Recovering/Resolving]
  - Breast operation [Recovering/Resolving]

NARRATIVE: CASE EVENT DATE: 2020
